FAERS Safety Report 15789598 (Version 1)
Quarter: 2019Q1

REPORT INFORMATION
  Report Type: Report from Study
  Country: GT (occurrence: GT)
  Receive Date: 20190104
  Receipt Date: 20190104
  Transmission Date: 20190417
  Serious: Yes (Other)
  Sender: FDA-Public Use
  Company Number: GT-SA-2018SA391641

PATIENT
  Age: 78 Year
  Sex: Female

DRUGS (3)
  1. HYDROCHLOROTHIAZIDE/IRBESARTAN [Suspect]
     Active Substance: HYDROCHLOROTHIAZIDE\IRBESARTAN
     Indication: HYPERTENSION
     Dosage: 300MG OF IRBESARTAN+12.5 MG OF HYDROCHOLOTHIAZIDE,1 DF, QD
     Route: 048
     Dates: start: 1998
  2. METFORMIN [Concomitant]
     Active Substance: METFORMIN HYDROCHLORIDE
     Indication: DIABETES MELLITUS
     Dosage: UNK
  3. SITAGLIPTIN [Concomitant]
     Active Substance: SITAGLIPTIN
     Indication: DIABETES MELLITUS
     Dosage: UNK

REACTIONS (3)
  - Choroidal effusion [Recovered/Resolved]
  - Blindness unilateral [Unknown]
  - Eye prosthesis insertion [Unknown]

NARRATIVE: CASE EVENT DATE: 200612
